FAERS Safety Report 7241925-1 (Version None)
Quarter: 2011Q1

REPORT INFORMATION
  Report Type: 
  Country: None (occurrence: None)
  Receive Date: 20110124
  Receipt Date: 20110119
  Transmission Date: 20110831
  Serious: Yes (Other)
  Sender: FDA-Public Use
  Company Number: FR-PFIZER INC-FR-WYE-G06618010

PATIENT
  Age: 14 Month
  Sex: Male
  Weight: 12 kg

DRUGS (2)
  1. REFACTO [Suspect]
     Indication: FACTOR VIII DEFICIENCY
     Dosage: 500 IU, SINGLE DOSE FOR BLEEDING EVENT
     Route: 042
     Dates: start: 20100505
  2. REFACTO [Suspect]
     Dosage: 500 IU, PER WEEK PROPHYLAXIS
     Route: 042
     Dates: start: 20100604

REACTIONS (2)
  - FACTOR VIII INHIBITION [None]
  - HAEMATOMA [None]
